FAERS Safety Report 12790379 (Version 1)
Quarter: 2016Q3

REPORT INFORMATION
  Report Type: Spontaneous
  Country: FR (occurrence: FR)
  Receive Date: 20160928
  Receipt Date: 20160928
  Transmission Date: 20161109
  Serious: Yes (Life-Threatening, Hospitalization, Other)
  Sender: FDA-Public Use
  Company Number: FR-ELI_LILLY_AND_COMPANY-FR201609009242

PATIENT
  Age: 0 Year
  Sex: Male
  Weight: 3.18 kg

DRUGS (3)
  1. ZYPREXA [Suspect]
     Active Substance: OLANZAPINE
     Indication: DEPRESSION
     Dosage: 12.5 MG, QD
     Route: 064
     Dates: start: 20150911, end: 20160608
  2. SERESTA [Suspect]
     Active Substance: OXAZEPAM
     Indication: DEPRESSION
     Dosage: 10 MG, PRN
     Route: 064
     Dates: start: 20150911, end: 20160608
  3. FLOXYFRAL [Suspect]
     Active Substance: FLUVOXAMINE
     Indication: DEPRESSION
     Dosage: 200 MG, QD
     Route: 064
     Dates: start: 20150911, end: 20160608

REACTIONS (4)
  - Apgar score low [Unknown]
  - Respiratory distress [Recovered/Resolved]
  - Foetal exposure during pregnancy [Recovered/Resolved]
  - Hypoventilation [Unknown]

NARRATIVE: CASE EVENT DATE: 20150911
